FAERS Safety Report 17009683 (Version 3)
Quarter: 2019Q4

REPORT INFORMATION
  Report Type: Spontaneous
  Country: CA (occurrence: CA)
  Receive Date: 20191108
  Receipt Date: 20191202
  Transmission Date: 20200122
  Serious: Yes (Hospitalization, Other)
  Sender: FDA-Public Use
  Company Number: CA-PFIZER INC-2019460242

PATIENT
  Age: 61 Year
  Sex: Female
  Weight: 73 kg

DRUGS (7)
  1. HUMALOG [Concomitant]
     Active Substance: INSULIN LISPRO
     Dosage: UNK
  2. INFLECTRA [Concomitant]
     Active Substance: INFLIXIMAB-DYYB
     Indication: COLITIS ULCERATIVE
     Dosage: 400 MG, UNK (AT WEEK 0, 2, 6 WEEKS, THEN EVERY 8 WEEKS)
     Dates: start: 20191101
  3. TRAMADOL. [Concomitant]
     Active Substance: TRAMADOL
     Dosage: UNK, AS NEEDED (T2T (TREAT TO TARGET) PRN)
     Route: 048
  4. ZOPICLONE [Concomitant]
     Active Substance: ZOPICLONE
     Dosage: 7.5 MG, AS NEEDED
     Route: 048
  5. FIORINAL [ACETYLSALICYLIC ACID;CAFFEINE;PARACETAMOL] [Concomitant]
     Active Substance: ACETAMINOPHEN\ASPIRIN\CAFFEINE
     Dosage: UNK, AS NEEDED
     Route: 048
  6. PREGABALIN. [Suspect]
     Active Substance: PREGABALIN
     Dosage: 50 MG, AS NEEDED (EVERY DAY)
     Route: 048
  7. CORTIMENT [BUDESONIDE] [Concomitant]
     Active Substance: BUDESONIDE
     Dosage: 9 MG, 1X/DAY
     Route: 048
     Dates: start: 201908

REACTIONS (6)
  - Fatigue [Unknown]
  - Colitis ulcerative [Recovering/Resolving]
  - White blood cell count increased [Unknown]
  - Lymphocyte count decreased [Unknown]
  - Glycosylated haemoglobin increased [Unknown]
  - Neutrophil count increased [Unknown]

NARRATIVE: CASE EVENT DATE: 20190806
